FAERS Safety Report 6814074-1 (Version None)
Quarter: 2010Q3

REPORT INFORMATION
  Report Type: 
  Country: None (occurrence: None)
  Receive Date: 20100702
  Receipt Date: 20100628
  Transmission Date: 20110219
  Serious: Yes (Life-Threatening, Other)
  Sender: FDA-Public Use
  Company Number: PHHY2010FR30608

PATIENT
  Age: 40 Year
  Sex: Male
  Weight: 80.9 kg

DRUGS (7)
  1. TRILEPTAL [Suspect]
     Indication: EPILEPSY
     Dosage: 300 MG, 3 DF BID (PEG ROUTE)
     Dates: start: 20051015
  2. TRILEPTAL [Suspect]
     Indication: CONVULSION
     Dosage: 600 MG, QD
  3. TRILEPTAL [Suspect]
     Dosage: 1800 MG/DAY
  4. TRILEPTAL [Suspect]
     Dosage: 1200 MG/DAY
  5. TRILEPTAL [Suspect]
     Dosage: 150 MG, BID (PEG ROUTE)
     Dates: start: 20100623
  6. LORAZEPAM [Concomitant]
     Indication: AGITATION
     Dosage: 2 DF, BID (PEG ROUTE)
     Dates: start: 20040401, end: 20100413
  7. SOLMUCOL [Concomitant]
     Dosage: 1 DF, QD (AS FLUIDIFYING)
     Dates: start: 20070416

REACTIONS (3)
  - EPILEPSY [None]
  - HYPERAMMONAEMIA [None]
  - METABOLIC ACIDOSIS [None]
